FAERS Safety Report 5466212 (Version 1)
Quarter: 2020Q3

REPORT INFORMATION
  Report Type: Spontaneous
  Country: ZA (occurrence: None)
  Receive Date: 19961022
  Receipt Date: 19961022
  Transmission Date: 20201104
  Serious: Yes (Life-Threatening, Other)
  Sender: FDA-Public Use
  Company Number: ZA96101984A

PATIENT
  Age: 62 Year
  Sex: Female

DRUGS (4)
  1. ATROVENT [Concomitant]
     Active Substance: IPRATROPIUM BROMIDE
     Dates: start: 19960905
  2. PAPAVERINE HYDROCHLORIDE. [Suspect]
     Active Substance: PAPAVERINE HYDROCHLORIDE
     Route: 016
  3. AMINOPHYLLINE. [Concomitant]
     Active Substance: AMINOPHYLLINE
     Dates: start: 19960905
  4. ISOSORBIDE. [Concomitant]
     Active Substance: ISOSORBIDE
     Dates: start: 19960905

REACTIONS (4)
  - Visual impairment [None]
  - Paraesthesia [None]
  - Apnoea [None]
  - Syncope [None]

NARRATIVE: CASE EVENT DATE: 19960919
